FAERS Safety Report 8879488 (Version 4)
Quarter: 2013Q2

REPORT INFORMATION
  Report Type: Spontaneous
  Country: US (occurrence: US)
  Receive Date: 20121031
  Receipt Date: 20130510
  Transmission Date: 20140414
  Serious: Yes (Hospitalization, Other)
  Sender: FDA-Public Use
  Company Number: US-UCBSA-069962

PATIENT
  Age: 60 Year
  Sex: Female
  Weight: 90.72 kg

DRUGS (6)
  1. VIMPAT [Suspect]
     Indication: GRAND MAL CONVULSION
     Dosage: STARTED: 10 + YEARS AGO
     Route: 048
  2. OXCARBAZEPINE [Concomitant]
     Indication: CONVULSION
     Route: 048
  3. PRISTIQ [Concomitant]
     Indication: CONVULSION
     Dosage: START DATE: PROBABLY 2-3 MONTHS
     Route: 048
  4. LORAZEPAM [Concomitant]
     Indication: CONVULSION
     Dosage: START DATE: MANY YEARS
     Route: 048
  5. LORAZEPAM [Concomitant]
     Indication: DEPRESSION
     Dosage: START DATE: MANY YEARS
     Route: 048
  6. BONIVA [Concomitant]
     Indication: OSTEOPOROSIS
     Dosage: STARTED: ESTIMATE 2 YEARS
     Route: 048

REACTIONS (4)
  - Convulsion [Recovered/Resolved]
  - Head injury [Recovered/Resolved]
  - Fall [Recovered/Resolved]
  - Overdose [Unknown]
